FAERS Safety Report 15767196 (Version 5)
Quarter: 2019Q1

REPORT INFORMATION
  Report Type: Report from Study
  Country: DE (occurrence: DE)
  Receive Date: 20181227
  Receipt Date: 20190319
  Transmission Date: 20190417
  Serious: Yes (Hospitalization)
  Sender: FDA-Public Use
  Company Number: DE-GILEAD-2018-0381854

PATIENT
  Age: 42 Year
  Sex: Male
  Weight: 100 kg

DRUGS (8)
  1. TARDOCILLIN [Concomitant]
     Active Substance: PENICILLIN G BENZATHINE
     Indication: SYPHILIS
     Route: 030
     Dates: start: 20181022, end: 20181022
  2. BUPROPION. [Concomitant]
     Active Substance: BUPROPION
     Indication: DEPRESSION
     Route: 048
     Dates: start: 2015
  3. PLACEBO [Suspect]
     Active Substance: UNSPECIFIED INGREDIENT
     Indication: PROPHYLAXIS AGAINST HIV INFECTION
     Dosage: 1 DF, QD
     Route: 048
     Dates: start: 20170523
  4. VENLAFAXIN [Concomitant]
     Active Substance: VENLAFAXINE HYDROCHLORIDE
     Indication: DEPRESSION
     Route: 048
     Dates: start: 2015
  5. IBUPROFEN. [Concomitant]
     Active Substance: IBUPROFEN
     Indication: ARTHRALGIA
     Route: 048
     Dates: start: 20180925, end: 20181005
  6. PANTOPRAZOLUM [Concomitant]
     Active Substance: PANTOPRAZOLE
     Route: 065
  7. EMTRICITABINE/TENOFOVIR DISOPROXIL FUMARATE [Suspect]
     Active Substance: EMTRICITABINE\TENOFOVIR DISOPROXIL FUMARATE
     Indication: PROPHYLAXIS AGAINST HIV INFECTION
     Dosage: 1 DF, QD
     Route: 048
     Dates: start: 20170523
  8. PANTOPRAZOL [PANTOPRAZOLE] [Concomitant]
     Indication: PROPHYLAXIS
     Route: 048
     Dates: start: 20181024, end: 20181101

REACTIONS (1)
  - Calculus urinary [Recovered/Resolved]

NARRATIVE: CASE EVENT DATE: 20181024
